FAERS Safety Report 22668549 (Version 2)
Quarter: 2024Q1

REPORT INFORMATION
  Report Type: Spontaneous
  Country: US (occurrence: US)
  Receive Date: 20230704
  Receipt Date: 20240303
  Transmission Date: 20240410
  Serious: Yes (Other)
  Sender: FDA-Public Use
  Company Number: US-LUPIN PHARMACEUTICALS INC.-2023-05256

PATIENT
  Age: 61 Year
  Sex: Female

DRUGS (46)
  1. LEVOTHYROXINE [Suspect]
     Active Substance: LEVOTHYROXINE\LEVOTHYROXINE SODIUM
     Indication: Hypothyroidism
     Dosage: 150 MICROGRAM, QD, EXCEPT EVERY SATURDAY
     Route: 048
  2. LEVOTHYROXINE [Suspect]
     Active Substance: LEVOTHYROXINE\LEVOTHYROXINE SODIUM
     Dosage: 175 MICROGRAM, EVERY SATURDAY
     Route: 048
  3. LEVOTHYROXINE [Suspect]
     Active Substance: LEVOTHYROXINE\LEVOTHYROXINE SODIUM
     Dosage: 125 MICROGRAM, QD (EACH MORNING ON AN EMPTY STOMACH 30 MINUTES BEFORE BREAKFAST  OR OTHER MEDICATION
     Route: 048
  4. OXYCODONE [Suspect]
     Active Substance: OXYCODONE\OXYCODONE HYDROCHLORIDE
     Indication: Product used for unknown indication
     Dosage: UNK
     Route: 065
  5. METFORMIN [Suspect]
     Active Substance: METFORMIN HYDROCHLORIDE
     Indication: Product used for unknown indication
     Dosage: UNK
     Route: 065
  6. MORPHINE SULFATE [Suspect]
     Active Substance: MORPHINE SULFATE
     Indication: Product used for unknown indication
     Dosage: UNK
     Route: 065
  7. CODEINE [Suspect]
     Active Substance: CODEINE
     Indication: Product used for unknown indication
     Dosage: UNK
     Route: 065
  8. ESOMEPRAZOLE [Suspect]
     Active Substance: ESOMEPRAZOLE
     Indication: Gastrooesophageal reflux disease
     Dosage: 40 MG, BID
     Route: 048
  9. INSULIN DEGLUDEC [Concomitant]
     Active Substance: INSULIN DEGLUDEC
     Indication: Diabetes mellitus
     Dosage: 40 INTERNATIONAL UNIT, QD, DAILY AND PER  SLIDING SCALE; MAXIMUM 50 UNITS DAILY
     Route: 058
  10. INSULIN ASPART [Concomitant]
     Active Substance: INSULIN ASPART
     Indication: Diabetes mellitus
     Dosage: 10 INTERNATIONAL UNIT, QD, WITH MEALS DAILY  AND PER SLIDING SCALE; MAXIMUM 50 UNITS DAILY
     Route: 058
  11. EMPAGLIFLOZIN [Concomitant]
     Active Substance: EMPAGLIFLOZIN
     Indication: Diabetes mellitus
     Dosage: 25 MG, QD
     Route: 048
  12. GLUCAGON [Concomitant]
     Active Substance: GLUCAGON\GLUCAGON HYDROCHLORIDE\WATER
     Indication: Hypoglycaemia
     Dosage: UNK, 1 MG/0.2 ML
     Route: 058
  13. LISINOPRIL [Concomitant]
     Active Substance: LISINOPRIL
     Indication: Hypertension
     Dosage: 10 MG, QD, IN EVENING
     Route: 048
  14. METOPROLOL SUCCINATE [Concomitant]
     Active Substance: METOPROLOL SUCCINATE
     Indication: Hypertension
     Dosage: 50 MG, QD
     Route: 048
  15. SPIRONOLACTONE [Concomitant]
     Active Substance: SPIRONOLACTONE
     Indication: Hypertension
     Dosage: 25 MG, QD, EVERY MORNING
     Route: 048
  16. HYDROCHLOROTHIAZIDE [Concomitant]
     Active Substance: HYDROCHLOROTHIAZIDE
     Indication: Nephrolithiasis
     Dosage: 50 MG, QD
     Route: 048
  17. ATORVASTATIN [Concomitant]
     Active Substance: ATORVASTATIN
     Indication: Hyperlipidaemia
     Dosage: 80 MG, QD, IN EVENING
     Route: 048
  18. CLOPIDOGREL [Concomitant]
     Active Substance: CLOPIDOGREL BISULFATE
     Indication: Prophylaxis
     Dosage: 75 MG, QD
     Route: 048
  19. ALPRAZOLAM [Concomitant]
     Active Substance: ALPRAZOLAM
     Indication: Anxiety
     Dosage: 0.25 MG, PRN, TWICE A DAY AS NEEDED
     Route: 048
  20. ALPRAZOLAM [Concomitant]
     Active Substance: ALPRAZOLAM
     Indication: Depression
  21. DULOXETINE [Concomitant]
     Active Substance: DULOXETINE
     Indication: Anxiety
     Dosage: 60 MG, QD, AT BEDTIME
     Route: 048
  22. DULOXETINE [Concomitant]
     Active Substance: DULOXETINE
     Indication: Depression
  23. CYCLOBENZAPRINE [Concomitant]
     Active Substance: CYCLOBENZAPRINE
     Indication: Arthralgia
     Dosage: 10 MG, PRN, THREE TIME A DAY AS NEEDED
     Route: 048
  24. CYCLOBENZAPRINE [Concomitant]
     Active Substance: CYCLOBENZAPRINE
     Indication: Muscle spasms
  25. ACETAMINOPHEN\DIPHENHYDRAMINE HYDROCHLORIDE [Concomitant]
     Active Substance: ACETAMINOPHEN\DIPHENHYDRAMINE HYDROCHLORIDE
     Indication: Arthralgia
     Dosage: 2 DOSAGE FORM, QD, IN EVENING
     Route: 048
  26. ACETAMINOPHEN\DIPHENHYDRAMINE HYDROCHLORIDE [Concomitant]
     Active Substance: ACETAMINOPHEN\DIPHENHYDRAMINE HYDROCHLORIDE
     Indication: Muscle spasms
  27. METHOCARBAMOL [Concomitant]
     Active Substance: METHOCARBAMOL
     Indication: Arthralgia
     Dosage: 750 MG, PRN, AS NEEDED, EVERY 6 HOURS
     Route: 048
  28. METHOCARBAMOL [Concomitant]
     Active Substance: METHOCARBAMOL
     Indication: Muscle spasms
  29. DICLOFENAC SODIUM [Concomitant]
     Active Substance: DICLOFENAC\DICLOFENAC SODIUM
     Indication: Arthralgia
     Dosage: 4 GRAM, PRN, UP TO 4 TIMES A DAY AS NEEDED
     Route: 061
  30. NITROGLYCERIN [Concomitant]
     Active Substance: NITROGLYCERIN
     Indication: Angina pectoris
     Dosage: 0.4 MG, PRN
     Route: 060
  31. ALBUTEROL [Concomitant]
     Active Substance: ALBUTEROL
     Indication: Seasonal allergy
     Dosage: UNK, METERED DOSE INHALER; 2 INHALATIONS EVERY 4-6 HOURS AS NEEDED
  32. CETIRIZINE [Concomitant]
     Active Substance: CETIRIZINE HYDROCHLORIDE
     Indication: Seasonal allergy
     Dosage: 10 MG, QD
     Route: 048
  33. FLUTICASONE [Concomitant]
     Active Substance: FLUTICASONE
     Indication: Seasonal allergy
     Dosage: 50 MICROGRAM, BID
     Route: 045
  34. SALINE [Concomitant]
     Active Substance: SODIUM CHLORIDE
     Indication: Seasonal allergy
     Dosage: UNK, QD
     Route: 045
  35. EPINEPHRINE [Concomitant]
     Active Substance: EPINEPHRINE
     Indication: Allergy to arthropod sting
     Dosage: UNK, EPINEPHRINE PEN STRENGTH: 0.3 MG/0.3 ML
     Route: 030
  36. ESTRADIOL [Concomitant]
     Active Substance: ESTRADIOL
     Indication: Atrophic vulvovaginitis
     Dosage: 1 MG, QD, TABLETS
     Route: 048
  37. ESTRADIOL [Concomitant]
     Active Substance: ESTRADIOL
     Indication: Atrophic vulvovaginitis
     Dosage: 10 MG, PRN, VAGINAL INSERTS
     Route: 067
  38. PREMARIN [Concomitant]
     Active Substance: ESTROGENS, CONJUGATED
     Indication: Atrophic vulvovaginitis
     Dosage: UNK, PRN
     Route: 067
  39. TRIAMCINOLONE [Concomitant]
     Active Substance: TRIAMCINOLONE
     Indication: Dermatitis
     Dosage: UNK UNK, PRN, TWICE DAILY
     Route: 061
  40. CALCIUM CITRATE [Concomitant]
     Active Substance: CALCIUM CITRATE
     Indication: Mineral supplementation
     Dosage: 600 MG, BID
     Route: 048
  41. CALCIUM\CHOLECALCIFEROL\MAGNESIUM [Concomitant]
     Active Substance: CALCIUM\CHOLECALCIFEROL\MAGNESIUM
     Indication: Supplementation therapy
     Dosage: UNK, QD (CONTAINS 500 MG CALCIUM,  AMOUNTS OF MAGNESIUM AND VITAMIN D UNKNOWN)
     Route: 048
  42. VITAMIN D3 [Concomitant]
     Active Substance: CHOLECALCIFEROL
     Indication: Supplementation therapy
     Dosage: 2 DOSAGE FORM, QD
     Route: 048
  43. MAGNESIUM [Concomitant]
     Active Substance: MAGNESIUM
     Indication: Hypomagnesaemia
     Dosage: 400 MG, QD
     Route: 048
  44. POTASSIUM CHLORIDE [Concomitant]
     Active Substance: POTASSIUM CHLORIDE
     Indication: Supplementation therapy
     Dosage: 10 MILLIEQUIVALENT, BID (POTASSIUM CHLORIDE ER)
     Route: 048
  45. VITAMIN B12 [Concomitant]
     Active Substance: CYANOCOBALAMIN
     Indication: Supplementation therapy
     Dosage: 500 MG, QD
     Route: 048
  46. PROBIOTICS NOS [Concomitant]
     Active Substance: PROBIOTICS NOS
     Indication: Supplementation therapy
     Dosage: UNK, QD
     Route: 048

REACTIONS (8)
  - Hyperthyroidism [Unknown]
  - Anaphylactic reaction [Unknown]
  - Osteoporosis [Unknown]
  - Vomiting [Unknown]
  - Diarrhoea [Unknown]
  - Urticaria [Unknown]
  - Pruritus [Unknown]
  - Nausea [Unknown]
